FAERS Safety Report 13765795 (Version 2)
Quarter: 2017Q3

REPORT INFORMATION
  Report Type: Spontaneous
  Country: CN (occurrence: CN)
  Receive Date: 20170718
  Receipt Date: 20170802
  Transmission Date: 20171127
  Serious: Yes (Death, Other)
  Sender: FDA-Public Use
  Company Number: CN-009507513-1707CHN005812

PATIENT
  Age: 28 Year
  Sex: Male

DRUGS (4)
  1. VORICONAZOLE. [Concomitant]
     Active Substance: VORICONAZOLE
     Indication: ANTIFUNGAL PROPHYLAXIS
     Dosage: LONG TERM PREVENTIVE THERAPY
  2. NOXAFIL [Suspect]
     Active Substance: POSACONAZOLE
     Dosage: 200 MG, TID; 5 ML
     Route: 048
  3. AMPHOTERICIN B (+) CHOLESTEROL (+) DISTEAROYLPHOSPHATIDYLGLYCEROL (+) [Suspect]
     Active Substance: AMPHOTERICIN B\CHOLESTEROL
     Indication: FUNGAL INFECTION
     Dosage: 1 MG/KG, QD
  4. NOXAFIL [Suspect]
     Active Substance: POSACONAZOLE
     Indication: FUNGAL INFECTION
     Dosage: 400 MG, BID; 10 ML
     Route: 048

REACTIONS (2)
  - Respiratory failure [Fatal]
  - Treatment failure [Not Recovered/Not Resolved]
